FAERS Safety Report 21653360 (Version 1)
Quarter: 2022Q4

REPORT INFORMATION
  Report Type: Other
  Country: GB (occurrence: GB)
  Receive Date: 20221128
  Receipt Date: 20221128
  Transmission Date: 20230113
  Serious: Yes (Other)
  Sender: FDA-Public Use
  Company Number: None

PATIENT
  Age: 41 Year
  Sex: Male
  Weight: 114 kg

DRUGS (4)
  1. NAPROXEN [Suspect]
     Active Substance: NAPROXEN
     Indication: Ill-defined disorder
     Dosage: UNK
     Route: 065
     Dates: start: 20221116
  2. ACYCLOVIR [Concomitant]
     Active Substance: ACYCLOVIR
     Indication: Ill-defined disorder
     Dosage: 1 TABLETS
     Route: 065
     Dates: start: 20220518
  3. METHADONE [Concomitant]
     Active Substance: METHADONE HYDROCHLORIDE
     Indication: Ill-defined disorder
     Dosage: 110 MILLILITER
     Route: 065
     Dates: start: 20221102
  4. ZEROBASE [PARAFFIN, LIQUID] [Concomitant]
     Indication: Ill-defined disorder
     Dosage: UNK (2-3 APPLICATION(S) UNCHECKED UNITS)
     Route: 065
     Dates: start: 20221020, end: 20221117

REACTIONS (1)
  - Stevens-Johnson syndrome [Unknown]

NARRATIVE: CASE EVENT DATE: 20221118
